FAERS Safety Report 4847293-4 (Version None)
Quarter: 2005Q4

REPORT INFORMATION
  Report Type: 
  Country: None (occurrence: None)
  Receive Date: 20051205
  Receipt Date: 20051118
  Transmission Date: 20060501
  Serious: Yes (Hospitalization)
  Sender: FDA-Public Use
  Company Number: 2005BI021130

PATIENT
  Sex: Female

DRUGS (2)
  1. AVONEX [Suspect]
     Indication: MULTIPLE SCLEROSIS
     Dosage: IM
     Route: 030
  2. CIPRO [Concomitant]

REACTIONS (4)
  - DIABETES MELLITUS [None]
  - GASTROINTESTINAL INFECTION [None]
  - INFLUENZA LIKE ILLNESS [None]
  - TREMOR [None]
